FAERS Safety Report 8842267 (Version 1)
Quarter: 2012Q4

REPORT INFORMATION
  Report Type: Report from Study
  Country: JP (occurrence: JP)
  Receive Date: 20121016
  Receipt Date: 20121016
  Transmission Date: 20130627
  Serious: Yes (Other)
  Sender: FDA-Public Use
  Company Number: JP-VERTEX PHARMACEUTICAL INC.-2012-022762

PATIENT
  Age: 63 Year
  Sex: Male

DRUGS (13)
  1. VX-950 [Suspect]
     Indication: HEPATITIS C
     Dosage: 2250 mg, qd
     Route: 048
     Dates: start: 20120221, end: 20120430
  2. VX-950 [Suspect]
     Dosage: 2000 mg, qd
     Route: 048
     Dates: start: 20120501, end: 20120510
  3. RIBAVIRIN [Suspect]
     Indication: HEPATITIS C
     Dosage: 800 mg, qd
     Route: 048
     Dates: start: 20120221, end: 20120409
  4. RIBAVIRIN [Suspect]
     Dosage: 600 mg, qd
     Route: 048
     Dates: start: 20120410, end: 20120424
  5. RIBAVIRIN [Suspect]
     Dosage: 400 mg, qd
     Route: 048
     Dates: start: 20120425, end: 20120510
  6. RIBAVIRIN [Suspect]
     Dosage: 400 mg, qd
     Route: 048
     Dates: start: 20120515
  7. PEGINTERFERON ALFA-2B [Suspect]
     Indication: HEPATITIS C
     Dosage: 135 ?g, weekly
     Route: 058
     Dates: start: 20120221, end: 20120506
  8. PEGINTERFERON ALFA-2B [Suspect]
     Dosage: 120 ?g, weekly
     Route: 058
     Dates: start: 20120507
  9. ATELEC [Concomitant]
     Dosage: 10 mg, qd
     Route: 048
  10. ATELEC [Concomitant]
     Dosage: 5 mg, qd
     Route: 048
     Dates: end: 20120507
  11. URINORM [Concomitant]
     Dosage: 25 mg, qd
     Route: 048
  12. PROMAC                             /00024401/ [Concomitant]
     Dosage: 150 mg, qd
     Route: 048
     Dates: start: 20120221
  13. TALION                             /01587402/ [Concomitant]
     Dosage: 20 mg, qd
     Route: 048
     Dates: start: 20120221

REACTIONS (1)
  - Haemoglobin decreased [Recovered/Resolved]
